FAERS Safety Report 8788279 (Version 4)
Quarter: 2012Q4

REPORT INFORMATION
  Report Type: 
  Country: US (occurrence: US)
  Receive Date: 20120914
  Receipt Date: 20121129
  Transmission Date: 20130627
  Serious: No
  Sender: FDA-Public Use
  Company Number: US-VERTEX PHARMACEUTICAL INC.-AE-2012-011802

PATIENT
  Age: 42 None
  Sex: Female
  Weight: 101 kg

DRUGS (5)
  1. VX-950 (TELAPREVIR) [Suspect]
     Indication: HEPATITIS C
     Dosage: 750 mg, tid
     Route: 048
     Dates: start: 20120713, end: 20120928
  2. RIBAPAK [Concomitant]
     Indication: HEPATITIS C
     Dosage: 600 mg, bid
     Route: 048
     Dates: start: 20120713
  3. PEGASYS [Concomitant]
     Indication: HEPATITIS C
     Dosage: 135 ?g, weekly
     Route: 058
     Dates: start: 20120713
  4. LASIX                              /00032601/ [Concomitant]
     Dosage: 20 mg, qd
     Route: 048
     Dates: start: 20120713
  5. SPIRONOLACTONE [Concomitant]
     Dosage: 25 mg, qd
     Route: 048
     Dates: start: 20120713

REACTIONS (15)
  - Depression [Unknown]
  - Asthma [Unknown]
  - Anxiety [Unknown]
  - Muscular weakness [Unknown]
  - Insomnia [Unknown]
  - Oedema [Unknown]
  - Abdominal pain [Unknown]
  - Alopecia [Not Recovered/Not Resolved]
  - Fatigue [Not Recovered/Not Resolved]
  - Rash [Unknown]
  - Haemorrhoids [Not Recovered/Not Resolved]
  - Diarrhoea [Unknown]
  - Anorectal discomfort [Unknown]
  - Nausea [Unknown]
  - Vomiting [Unknown]
